FAERS Safety Report 9275030 (Version 1)
Quarter: 2013Q1

REPORT INFORMATION
  Report Type: Spontaneous
  Country: US (occurrence: None)
  Receive Date: 20130322
  Receipt Date: 20130322
  Transmission Date: 20140127
  Serious: Yes (Other)
  Sender: FDA-Public Use
  Company Number: 1125808

PATIENT
  Age: 45 Year
  Sex: Female

DRUGS (1)
  1. ENDURE 320 ADVANCED CARE WATERLESS ANTIMICROBIAL HAND RINSE WITH MOISTURIZERS [Suspect]
     Dates: start: 20130226

REACTIONS (3)
  - Somnolence [None]
  - Heart rate increased [None]
  - Respiratory rate increased [None]
